FAERS Safety Report 8112067-8 (Version None)
Quarter: 2012Q1

REPORT INFORMATION
  Report Type: 
  Country: None (occurrence: None)
  Receive Date: 20120203
  Receipt Date: 20120130
  Transmission Date: 20120608
  Serious: Yes (Disabling)
  Sender: FDA-Public Use
  Company Number: JP-PFIZER INC-2012007645

PATIENT
  Age: 74 Year
  Sex: Male
  Weight: 62 kg

DRUGS (4)
  1. ADALAT [Concomitant]
     Dosage: 20 MG, 1X/DAY
     Route: 048
  2. TEMSIROLIMUS [Suspect]
     Indication: RENAL CELL CARCINOMA
     Dosage: 25 MG, WEEKLY
     Route: 042
     Dates: start: 20110518, end: 20110608
  3. CANDESARTAN CILEXETIL [Concomitant]
     Dosage: 8 MG, 1X/DAY
     Route: 048
  4. CHLOR-TRIMETON [Concomitant]
     Indication: PROPHYLAXIS
     Dosage: 10 MG, WEEKLY
     Dates: start: 20110518, end: 20110608

REACTIONS (1)
  - ERYTHEMA MULTIFORME [None]
